FAERS Safety Report 8089630-6 (Version None)
Quarter: 2012Q1

REPORT INFORMATION
  Report Type: 
  Country: None (occurrence: None)
  Receive Date: 20120128
  Receipt Date: 20110711
  Transmission Date: 20120608
  Serious: No
  Sender: FDA-Public Use
  Company Number: US-ABBOTT-11P-163-0837880-00

PATIENT
  Age: 38 Year
  Sex: Male

DRUGS (2)
  1. HUMIRA [Suspect]
     Indication: PSORIATIC ARTHROPATHY
     Dates: start: 20090701, end: 20110601
  2. HUMIRA [Suspect]
     Indication: PSORIASIS

REACTIONS (3)
  - NAUSEA [None]
  - DECREASED APPETITE [None]
  - ARTHRALGIA [None]
